FAERS Safety Report 13396753 (Version 2)
Quarter: 2017Q2

REPORT INFORMATION
  Report Type: Spontaneous
  Country: US (occurrence: US)
  Receive Date: 20170403
  Receipt Date: 20170414
  Transmission Date: 20170830
  Serious: Yes (Life-Threatening, Hospitalization)
  Sender: FDA-Public Use
  Company Number: US-JNJFOC-20170331864

PATIENT
  Age: 12 Year
  Sex: Female
  Weight: 53.62 kg

DRUGS (10)
  1. TYLENOL [Suspect]
     Active Substance: ACETAMINOPHEN
     Route: 048
  2. TYLENOL [Suspect]
     Active Substance: ACETAMINOPHEN
     Indication: PRODUCT USED FOR UNKNOWN INDICATION
     Dosage: 10 DOSES
     Route: 048
     Dates: start: 20161127, end: 20161127
  3. ADVIL [Suspect]
     Active Substance: IBUPROFEN
     Indication: PRODUCT USED FOR UNKNOWN INDICATION
     Dosage: 10 PILLS TAKEN AT ONE TIME
     Route: 048
     Dates: start: 20161127, end: 20161127
  4. ABILIFY [Suspect]
     Active Substance: ARIPIPRAZOLE
     Indication: ANXIETY
     Route: 048
     Dates: start: 20161202
  5. ABILIFY [Suspect]
     Active Substance: ARIPIPRAZOLE
     Indication: ANXIETY
     Dosage: ONCE A DAY AFTER DINNER
     Route: 048
     Dates: start: 20160412, end: 201606
  6. ABILIFY [Suspect]
     Active Substance: ARIPIPRAZOLE
     Indication: ANXIETY
     Dosage: 2-3 PILLS
     Route: 048
  7. WELLBUTRIN [Suspect]
     Active Substance: BUPROPION HYDROCHLORIDE
     Indication: PRODUCT USED FOR UNKNOWN INDICATION
     Route: 065
  8. TRAZODONE [Concomitant]
     Active Substance: TRAZODONE HYDROCHLORIDE
     Indication: INSOMNIA
     Dosage: 25 MG QD
     Route: 048
     Dates: start: 20161202
  9. ZOLOFT [Suspect]
     Active Substance: SERTRALINE HYDROCHLORIDE
     Indication: ANXIETY
     Dosage: 2-3 PILLS
     Route: 048
     Dates: start: 20160412, end: 201606
  10. ZOLOFT [Suspect]
     Active Substance: SERTRALINE HYDROCHLORIDE
     Indication: ANXIETY
     Route: 048
     Dates: start: 20161202

REACTIONS (7)
  - Nausea [Unknown]
  - Abdominal pain [Unknown]
  - Vomiting [Recovering/Resolving]
  - Intentional self-injury [Recovered/Resolved]
  - Suicide attempt [Recovered/Resolved]
  - Headache [Unknown]
  - Intentional overdose [Recovered/Resolved]

NARRATIVE: CASE EVENT DATE: 20161127
